FAERS Safety Report 17808394 (Version 1)
Quarter: 2020Q2

REPORT INFORMATION
  Report Type: Spontaneous
  Country: US (occurrence: US)
  Receive Date: 20200520
  Receipt Date: 20200520
  Transmission Date: 20200714
  Serious: No
  Sender: FDA-Public Use
  Company Number: US-PFIZER INC-2020200327

PATIENT
  Age: 71 Year
  Sex: Female
  Weight: 74.39 kg

DRUGS (1)
  1. IBRANCE [Suspect]
     Active Substance: PALBOCICLIB
     Indication: BREAST CANCER FEMALE
     Dosage: 125 MG, CYCLIC [DAILY FOR 21 DAYS THEN 7 DAYS OFF]
     Route: 048
     Dates: start: 20200505

REACTIONS (1)
  - Urine odour abnormal [Unknown]

NARRATIVE: CASE EVENT DATE: 202005
